FAERS Safety Report 6822749-3 (Version None)
Quarter: 2010Q3

REPORT INFORMATION
  Report Type: 
  Country: None (occurrence: None)
  Receive Date: 20100706
  Receipt Date: 20100706
  Transmission Date: 20110219
  Serious: Yes (Hospitalization)
  Sender: FDA-Public Use
  Company Number: None

PATIENT
  Sex: Female
  Weight: 60 kg

DRUGS (10)
  1. CYCLOPHOSPHAMIDE [Suspect]
     Dosage: 1710 MG
  2. CYTARABINE [Suspect]
     Dosage: 1040 MG
  3. DEXAMETHASONE [Suspect]
     Dosage: 224 MG
  4. DOXORUBICIN HYDROCHLORIDE [Suspect]
     Dosage: 126 MG
  5. ERWINIA ASPARAGINASE [Suspect]
     Dosage: 250500 IU
  6. METHOTREXATE [Suspect]
     Dosage: 45 MG
  7. THIOGUANINE [Suspect]
     Dosage: 1400 MG
  8. VINCRISTINE SULFATE [Suspect]
     Dosage: 6 MG
  9. ONDANESTRON [Concomitant]
  10. SEPTRA [Concomitant]

REACTIONS (4)
  - CENTRAL NERVOUS SYSTEM LESION [None]
  - CEREBRAL INFARCTION [None]
  - LEUKAEMIC INFILTRATION [None]
  - REVERSIBLE POSTERIOR LEUKOENCEPHALOPATHY SYNDROME [None]
